FAERS Safety Report 18735084 (Version 2)
Quarter: 2021Q1

REPORT INFORMATION
  Report Type: Spontaneous
  Country: US (occurrence: US)
  Receive Date: 20210113
  Receipt Date: 20210203
  Transmission Date: 20210419
  Serious: No
  Sender: FDA-Public Use
  Company Number: US-GRANULES-US-2021GRASPO00023

PATIENT
  Sex: Female

DRUGS (2)
  1. IBUPROFEN. [Suspect]
     Active Substance: IBUPROFEN
     Indication: INFLAMMATION
     Route: 048
  2. IBUPROFEN. [Suspect]
     Active Substance: IBUPROFEN
     Indication: PAIN

REACTIONS (3)
  - Product odour abnormal [Unknown]
  - Product taste abnormal [Unknown]
  - Drug ineffective [Unknown]
